FAERS Safety Report 8077552-6 (Version None)
Quarter: 2012Q1

REPORT INFORMATION
  Report Type: 
  Country: None (occurrence: None)
  Receive Date: 20120127
  Receipt Date: 20120123
  Transmission Date: 20120608
  Serious: Yes (Death, Other)
  Sender: FDA-Public Use
  Company Number: GB-ABBOTT-11P-167-0867103-00

PATIENT
  Sex: Male

DRUGS (1)
  1. HUMIRA [Suspect]
     Indication: RHEUMATOID ARTHRITIS
     Route: 058
     Dates: start: 20060729, end: 20070115

REACTIONS (6)
  - CEREBRAL HAEMORRHAGE [None]
  - VISUAL IMPAIRMENT [None]
  - HEADACHE [None]
  - HYPERTENSION [None]
  - HEMIPARESIS [None]
  - HAEMORRHAGIC STROKE [None]
